FAERS Safety Report 21509121 (Version 1)
Quarter: 2022Q4

REPORT INFORMATION
  Report Type: Spontaneous
  Country: US (occurrence: None)
  Receive Date: 20221026
  Receipt Date: 20221026
  Transmission Date: 20230112
  Serious: Yes (Disabling)
  Sender: FDA-Public Use
  Company Number: None

PATIENT
  Age: 27 Year
  Sex: Female
  Weight: 100.8 kg

DRUGS (4)
  1. SUBUTEX [Suspect]
     Active Substance: BUPRENORPHINE HYDROCHLORIDE
     Indication: Drug dependence
     Dates: start: 20181124, end: 20221023
  2. PREGABALIN [Concomitant]
     Active Substance: PREGABALIN
  3. LEVOTHYROXINE [Concomitant]
     Active Substance: LEVOTHYROXINE
  4. BUPROPION [Concomitant]
     Active Substance: BUPROPION

REACTIONS (3)
  - Tooth disorder [None]
  - Depression [None]
  - Mastication disorder [None]

NARRATIVE: CASE EVENT DATE: 20190124
